FAERS Safety Report 8348668 (Version 7)
Quarter: 2013Q4

REPORT INFORMATION
  Report Type: Report from Study
  Country: BR (occurrence: BR)
  Receive Date: 20120123
  Receipt Date: 20131004
  Transmission Date: 20140711
  Serious: Yes (Disabling)
  Sender: FDA-Public Use
  Company Number: BR-ROCHE-1024155

PATIENT
  Age: 54 Year
  Sex: Female
  Weight: 66 kg

DRUGS (6)
  1. FOLIC ACID [Concomitant]
     Route: 065
     Dates: start: 20101129
  2. PREDNISONE [Concomitant]
     Route: 065
     Dates: start: 200909
  3. AMITRIPTYLINE [Concomitant]
     Route: 065
     Dates: start: 20110222
  4. OMEPRAZOLE [Concomitant]
     Route: 065
     Dates: start: 20110613
  5. TOCILIZUMAB [Suspect]
     Indication: RHEUMATOID ARTHRITIS
     Dosage: LAST DOSE PRIOR TO SAE 04 OCT 2011,DOSE:BLINDED
     Route: 042
     Dates: start: 20101129, end: 20111101
  6. METHOTREXATE [Suspect]
     Indication: RHEUMATOID ARTHRITIS
     Dosage: LAST DOSE PRIOR TO SAE 06 DEC 2011,
     Route: 048
     Dates: start: 20101129

REACTIONS (1)
  - Cerebral ischaemia [Recovered/Resolved with Sequelae]
